FAERS Safety Report 6308234-6 (Version None)
Quarter: 2009Q3

REPORT INFORMATION
  Report Type: 
  Country: None (occurrence: None)
  Receive Date: 20090813
  Receipt Date: 20090804
  Transmission Date: 20100115
  Serious: Yes (Life-Threatening, Hospitalization, Other)
  Sender: FDA-Public Use
  Company Number: JP-PFIZER INC-2009245656

PATIENT
  Age: 47 Year

DRUGS (2)
  1. NORVASC [Suspect]
     Dosage: 90 DF, SINGLE
  2. VALSARTAN [Suspect]
     Dosage: 90 DF, SINGLE

REACTIONS (4)
  - HYPOTENSION [None]
  - INTENTIONAL OVERDOSE [None]
  - SHOCK [None]
  - SUICIDE ATTEMPT [None]
